FAERS Safety Report 7457783-6 (Version None)
Quarter: 2011Q2

REPORT INFORMATION
  Report Type: 
  Country: None (occurrence: None)
  Receive Date: 20110504
  Receipt Date: 20110426
  Transmission Date: 20111010
  Serious: Yes (Other)
  Sender: FDA-Public Use
  Company Number: DZ-ROCHE-773968

PATIENT
  Age: 42 Year
  Sex: Female

DRUGS (4)
  1. COPEGUS [Suspect]
     Route: 048
  2. PEGASYS [Suspect]
     Dosage: TREATMENT RESTARTED UNTIL THERAPY COMPLETED
     Route: 058
  3. COPEGUS [Suspect]
     Indication: HEPATITIS C
     Route: 048
     Dates: start: 20090316, end: 20090412
  4. PEGASYS [Suspect]
     Indication: HEPATITIS C
     Dosage: DOSE NOT REPORTED.
     Route: 058
     Dates: start: 20090316, end: 20090412

REACTIONS (2)
  - DRUG EXPOSURE DURING PREGNANCY [None]
  - ABORTION INDUCED [None]
